FAERS Safety Report 9851984 (Version 2)
Quarter: 2014Q1

REPORT INFORMATION
  Report Type: Spontaneous
  Country: US (occurrence: None)
  Receive Date: 20131127
  Receipt Date: 20140228
  Transmission Date: 20141002
  Serious: No
  Sender: FDA-Public Use
  Company Number: 224419LEO

PATIENT
  Age: 62 Year
  Sex: Male

DRUGS (1)
  1. PICATO [Suspect]
     Indication: ACTINIC KERATOSIS
     Dosage: GEL, FOR 3 DAYS, TOPICAL
     Route: 061
     Dates: start: 20131023

REACTIONS (5)
  - Application site pruritus [None]
  - Application site erythema [None]
  - Drug administered at inappropriate site [None]
  - Application site papules [None]
  - Skin discolouration [None]
